FAERS Safety Report 10013607 (Version 2)
Quarter: 2014Q2

REPORT INFORMATION
  Report Type: Report from Study
  Country: JP (occurrence: JP)
  Receive Date: 20140315
  Receipt Date: 20140423
  Transmission Date: 20141212
  Serious: Yes (Hospitalization)
  Sender: FDA-Public Use
  Company Number: JP-ROCHE-1361624

PATIENT
  Age: 71 Year
  Sex: Female
  Weight: 50 kg

DRUGS (10)
  1. METHOXY POLYETHYLENE GLYCOL-EPOETIN BETA [Suspect]
     Indication: NEPHROGENIC ANAEMIA
     Route: 058
     Dates: start: 20121130, end: 20121130
  2. METHOXY POLYETHYLENE GLYCOL-EPOETIN BETA [Suspect]
     Route: 058
     Dates: start: 20121225, end: 20130618
  3. METHOXY POLYETHYLENE GLYCOL-EPOETIN BETA [Suspect]
     Route: 058
     Dates: start: 20130717
  4. LIPITOR [Concomitant]
     Route: 048
  5. CARDENALIN [Concomitant]
     Route: 048
  6. PERSANTIN [Concomitant]
     Route: 048
  7. FERROMIA [Concomitant]
     Indication: GLOMERULONEPHRITIS CHRONIC
     Route: 048
  8. NORVASC [Concomitant]
     Route: 048
  9. ZYLORIC [Concomitant]
     Route: 048
  10. OLMETEC [Concomitant]
     Route: 048

REACTIONS (1)
  - Malignant melanoma of eyelid [Recovering/Resolving]
